FAERS Safety Report 22596139 (Version 1)
Quarter: 2023Q2

REPORT INFORMATION
  Report Type: Spontaneous
  Country: CN (occurrence: CN)
  Receive Date: 20230613
  Receipt Date: 20230613
  Transmission Date: 20230722
  Serious: Yes (Hospitalization)
  Sender: FDA-Public Use
  Company Number: CN-Merck Healthcare KGaA-9406190

PATIENT
  Age: 57 Year
  Sex: Male

DRUGS (3)
  1. ERBITUX [Suspect]
     Active Substance: CETUXIMAB
     Indication: Hepatic cancer
     Dosage: 100 MG, DAILY
     Route: 041
     Dates: start: 20230507, end: 20230507
  2. CISPLATIN [Suspect]
     Active Substance: CISPLATIN
     Indication: Hepatic cancer
     Dosage: 30 MG, DAILY
     Route: 041
     Dates: start: 20230506, end: 20230509
  3. PACLITAXEL [Suspect]
     Active Substance: PACLITAXEL
     Indication: Hepatic cancer
     Dosage: 180 MG, DAILY
     Route: 041
     Dates: start: 20230506, end: 20230506

REACTIONS (2)
  - Pyrexia [Not Recovered/Not Resolved]
  - Granulocyte count decreased [Not Recovered/Not Resolved]

NARRATIVE: CASE EVENT DATE: 20230511
